FAERS Safety Report 4940579-4 (Version None)
Quarter: 2006Q1

REPORT INFORMATION
  Report Type: 
  Country: None (occurrence: None)
  Receive Date: 20060201
  Receipt Date: 20051111
  Transmission Date: 20060701
  Serious: No
  Sender: FDA-Public Use
  Company Number: 2005PV004867

PATIENT
  Age: 71 Year
  Sex: Female

DRUGS (7)
  1. BYETTA [Suspect]
     Dosage: 5 MCG; BID; SC
     Route: 058
     Dates: start: 20051101
  2. METFORMIN [Concomitant]
  3. LIPITOR [Concomitant]
  4. AMARYL [Concomitant]
  5. STOOL SOFTENER [Concomitant]
  6. AMOXICILLIN [Concomitant]
  7. SONATA [Concomitant]

REACTIONS (1)
  - BLOOD GLUCOSE FLUCTUATION [None]
